FAERS Safety Report 9630157 (Version 2)
Quarter: 2013Q4

REPORT INFORMATION
  Report Type: Report from Study
  Country: US (occurrence: US)
  Receive Date: 20131017
  Receipt Date: 20131104
  Transmission Date: 20140711
  Serious: Yes (Hospitalization, Other)
  Sender: FDA-Public Use
  Company Number: PHEH2013US021560

PATIENT
  Age: 14 Year
  Sex: Female
  Weight: 50 kg

DRUGS (20)
  1. TOBI PODHALER [Suspect]
     Indication: PSEUDOMONAS INFECTION
     Dosage: 300 MG, BID
     Dates: start: 20130618, end: 20130716
  2. CAYSTON [Concomitant]
     Dosage: UNK UKN, UNK
  3. AQUADEKS [Concomitant]
     Dosage: 1 DF, QD
     Route: 048
  4. AZITHROMYCIN [Concomitant]
     Dosage: 1 DF, UNK
     Route: 048
  5. ITRACONAZOLE [Concomitant]
     Dosage: 1 DF, BID
     Route: 048
  6. GLUCAGON EMERGENCY KIT [Concomitant]
     Dosage: UNK UKN, UNK
  7. IPRATROPIUM BROMIDE [Concomitant]
     Dosage: 2 DF, BID
     Route: 045
  8. FLUTICASONE [Concomitant]
     Dosage: 1 DF, QD
     Route: 045
  9. INSULIN ASPART [Concomitant]
     Dosage: 100 U, UNK
  10. DORNASE ALFA [Concomitant]
     Dosage: 2.5 ML, QD
  11. CHOLECALCIFEROL [Concomitant]
     Dosage: 1 DF, BID
     Route: 048
  12. POLYETHYLENE GLYCOL [Concomitant]
     Dosage: 1 DF, BID (AS NEEDED)
     Route: 048
  13. PANCRELIPASE [Concomitant]
     Dosage: THREE CAPSULES BEFORE MEALS AND TWO BEFORE SNACKS
     Route: 048
  14. SULFAMETHOXAZOLE [Concomitant]
     Dosage: 1 DF, BID
     Route: 048
  15. FLUOCINOLONE [Concomitant]
     Dosage: UNK UKN, UNK
     Route: 061
  16. FLOVENT [Concomitant]
     Dosage: 2 DF, BID
  17. NEXIUM//ESOMEPRAZOLE MAGNESIUM [Concomitant]
     Dosage: 1 DF, BID
  18. ACETAMINOPHEN [Concomitant]
     Indication: PAIN
     Dosage: 2 DF, PRN
     Route: 048
  19. ALBUTEROL SULFATE [Concomitant]
     Dosage: 2 DF, QID
  20. SODIUM CHLORIDE [Concomitant]
     Dosage: 4 ML, QID

REACTIONS (11)
  - Infective pulmonary exacerbation of cystic fibrosis [Unknown]
  - Lung disorder [Unknown]
  - Sinusitis [Unknown]
  - Weight decreased [Unknown]
  - Staphylococcal infection [Unknown]
  - Aspergillus infection [Unknown]
  - Bacterial disease carrier [Unknown]
  - Haemoptysis [Recovered/Resolved]
  - Cough [Unknown]
  - Dyspnoea [Unknown]
  - Pseudomonas infection [Unknown]
